FAERS Safety Report 14371154 (Version 2)
Quarter: 2018Q1

REPORT INFORMATION
  Report Type: Spontaneous
  Country: US (occurrence: US)
  Receive Date: 20180110
  Receipt Date: 20180210
  Transmission Date: 20180509
  Serious: No
  Sender: FDA-Public Use
  Company Number: US-009507513-1712USA006301

PATIENT
  Age: 19 Year
  Sex: Female
  Weight: 118.82 kg

DRUGS (2)
  1. NEXPLANON [Suspect]
     Active Substance: ETONOGESTREL
     Indication: CONTRACEPTION
     Dosage: 1 SINGLE IMPLANT, EVERY THREE YEARS, LEFT ARM
     Route: 059
     Dates: start: 20141023, end: 20171208
  2. NEXPLANON [Suspect]
     Active Substance: ETONOGESTREL
     Dosage: 1 SINGLE IMPLANT, EVERY THREE YEARS
     Route: 059
     Dates: start: 20171208

REACTIONS (5)
  - Menstruation irregular [Unknown]
  - Device breakage [Recovered/Resolved]
  - Incorrect drug administration duration [Unknown]
  - Complication of device removal [Recovered/Resolved]
  - Device deployment issue [Recovered/Resolved]

NARRATIVE: CASE EVENT DATE: 20141023
